FAERS Safety Report 4843918-8 (Version None)
Quarter: 2005Q4

REPORT INFORMATION
  Report Type: 
  Country: None (occurrence: None)
  Receive Date: 20051202
  Receipt Date: 20050421
  Transmission Date: 20060501
  Serious: No
  Sender: FDA-Public Use
  Company Number: US-GLAXOSMITHKLINE-A0555203A

PATIENT
  Sex: Female

DRUGS (5)
  1. AUGMENTIN [Suspect]
     Indication: DRUG USE FOR UNKNOWN INDICATION
     Dosage: 875MG TWICE PER DAY
     Route: 048
     Dates: start: 20050315
  2. IMIPRAMINE [Concomitant]
  3. ARIMIDEX [Concomitant]
  4. NEXIUM [Concomitant]
  5. CELEBREX [Concomitant]

REACTIONS (1)
  - TONGUE BLACK HAIRY [None]
